FAERS Safety Report 22185698 (Version 4)
Quarter: 2024Q3

REPORT INFORMATION
  Report Type: Spontaneous
  Country: US (occurrence: US)
  Receive Date: 20230407
  Receipt Date: 20240712
  Transmission Date: 20241017
  Serious: Yes (Other)
  Sender: PIERRE FABRE MEDICAMENT
  Company Number: US-PFM-2022-05778

PATIENT
  Sex: Male
  Weight: 11.197 kg

DRUGS (2)
  1. HEMANGEOL [Suspect]
     Active Substance: PROPRANOLOL HYDROCHLORIDE
     Indication: Haemangioma
     Dosage: 1.7 ML, BID (2/DAY)
     Route: 048
  2. HEMANGEOL [Suspect]
     Active Substance: PROPRANOLOL HYDROCHLORIDE
     Dosage: 4.3 ML, BID (2/DAY)
     Route: 048

REACTIONS (4)
  - Seizure [Unknown]
  - Drug intolerance [Recovering/Resolving]
  - Tic [Unknown]
  - Vomiting [Unknown]
